FAERS Safety Report 9872571 (Version 2)
Quarter: 2015Q1

REPORT INFORMATION
  Report Type: Other
  Country: US (occurrence: US)
  Receive Date: 20140206
  Receipt Date: 20150203
  Transmission Date: 20150721
  Serious: Yes (Hospitalization, Other)
  Sender: FDA-Public Use
  Company Number: US-ACORDA-ACO_100792_2013

PATIENT
  Age: 68 Year
  Sex: Female

DRUGS (6)
  1. AMPYRA [Suspect]
     Active Substance: DALFAMPRIDINE
     Indication: GAIT DISTURBANCE
     Dosage: UNK,UNK
     Route: 065
     Dates: start: 201312, end: 201312
  2. COPAXONE [Interacting]
     Active Substance: GLATIRAMER ACETATE
     Indication: MULTIPLE SCLEROSIS
     Dosage: UNK,UNK
     Route: 065
  3. ANTIHYPERTENSIVES [Interacting]
     Active Substance: UNSPECIFIED INGREDIENT
     Indication: BLOOD PRESSURE
     Dosage: UNK,UNK
     Route: 065
  4. NEURONTIN [Interacting]
     Active Substance: GABAPENTIN
     Indication: BACK PAIN
  5. DIURETICS [Interacting]
     Active Substance: UNSPECIFIED INGREDIENT
     Indication: BLOOD PRESSURE
     Dosage: UNK,UNK
     Route: 065
  6. NEURONTIN [Interacting]
     Active Substance: GABAPENTIN
     Indication: NEURALGIA
     Dosage: UNK,UNK
     Route: 065

REACTIONS (14)
  - Dizziness [Recovered/Resolved]
  - Balance disorder [Recovered/Resolved]
  - Gait disturbance [Not Recovered/Not Resolved]
  - Diarrhoea [Unknown]
  - Renal failure [Recovering/Resolving]
  - Drug interaction [Unknown]
  - Abdominal pain upper [Recovered/Resolved]
  - Accidental overdose [Unknown]
  - Cognitive disorder [Recovering/Resolving]
  - Gout [Recovered/Resolved]
  - Vomiting [Recovered/Resolved]
  - Dehydration [Recovering/Resolving]
  - Syncope [Unknown]
  - Nausea [Unknown]

NARRATIVE: CASE EVENT DATE: 201312
